FAERS Safety Report 5989485-7 (Version None)
Quarter: 2008Q4

REPORT INFORMATION
  Report Type: 
  Country: None (occurrence: None)
  Receive Date: 20081208
  Receipt Date: 20081121
  Transmission Date: 20090506
  Serious: Yes (Death)
  Sender: FDA-Public Use
  Company Number: 2008AL010504

PATIENT
  Age: 75 Year
  Sex: Female

DRUGS (1)
  1. DIGOXIN [Suspect]
     Dosage: AMIDE
     Route: 048

REACTIONS (7)
  - ACTIVITIES OF DAILY LIVING IMPAIRED [None]
  - ANHEDONIA [None]
  - ANXIETY [None]
  - FAMILY STRESS [None]
  - INJURY [None]
  - PAIN [None]
  - SOCIAL PROBLEM [None]
